FAERS Safety Report 7818306-2 (Version None)
Quarter: 2011Q4

REPORT INFORMATION
  Report Type: 
  Country: None (occurrence: None)
  Receive Date: 20111017
  Receipt Date: 20111003
  Transmission Date: 20120403
  Serious: Yes (Other)
  Sender: FDA-Public Use
  Company Number: US-BAYER-2011-095094

PATIENT
  Age: 39 Year
  Sex: Female
  Weight: 55 kg

DRUGS (2)
  1. ALEVE (CAPLET) [Suspect]
     Indication: PRODUCT USED FOR UNKNOWN INDICATION
     Dosage: 440 MG, ONCE
     Route: 048
     Dates: start: 20110927, end: 20110927
  2. LOESTRIN 1.5/30 [Concomitant]

REACTIONS (11)
  - BLISTER [None]
  - JOINT SWELLING [None]
  - LIP BLISTER [None]
  - FEELING HOT [None]
  - CHEILITIS [None]
  - PRURITUS [None]
  - ERYTHEMA [None]
  - HYPERSENSITIVITY [None]
  - OEDEMA PERIPHERAL [None]
  - LIP SWELLING [None]
  - SWOLLEN TONGUE [None]
